FAERS Safety Report 11751742 (Version 2)
Quarter: 2015Q4

REPORT INFORMATION
  Report Type: Report from Study
  Country: FR (occurrence: FR)
  Receive Date: 20151118
  Receipt Date: 20151204
  Transmission Date: 20160304
  Serious: Yes (Hospitalization)
  Sender: FDA-Public Use
  Company Number: FR-BRISTOL-MYERS SQUIBB COMPANY-BMS-2015-078005

PATIENT
  Age: 63 Year
  Sex: Female
  Weight: 56 kg

DRUGS (2)
  1. NIVOLUMAB [Suspect]
     Active Substance: NIVOLUMAB
     Indication: CLEAR CELL RENAL CELL CARCINOMA
     Dosage: 3 MG/KG, EVERY 3 WEEKS, RECENT DOSE: 08SEP2015
     Route: 042
     Dates: start: 20150817
  2. IPILIMUMAB [Suspect]
     Active Substance: IPILIMUMAB
     Indication: CLEAR CELL RENAL CELL CARCINOMA
     Dosage: 1 MG/KG, EVERY 3 WEEKS, RECENT DOSE: 08SEP2015
     Route: 042
     Dates: start: 20150817

REACTIONS (1)
  - Confusional state [Recovered/Resolved]

NARRATIVE: CASE EVENT DATE: 20151105
